FAERS Safety Report 24623135 (Version 1)
Quarter: 2024Q4

REPORT INFORMATION
  Report Type: Spontaneous
  Country: GB (occurrence: GB)
  Receive Date: 20241115
  Receipt Date: 20241115
  Transmission Date: 20250115
  Serious: Yes (Other)
  Sender: AUROBINDO
  Company Number: GB-MHRA-MED-202411011914120480-SQMCB

PATIENT
  Age: 63 Year
  Sex: Female

DRUGS (2)
  1. MELATONIN [Suspect]
     Active Substance: MELATONIN
     Indication: Sleep deficit
     Dosage: 2 MILLIGRAM (SR)
     Route: 065
     Dates: start: 20241024
  2. INFLUENZA VIRUS VACCINE [Concomitant]
     Active Substance: INFLUENZA VIRUS VACCINE
     Indication: Product used for unknown indication
     Dosage: UNK
     Route: 065
     Dates: start: 20241003

REACTIONS (5)
  - Contusion [Recovering/Resolving]
  - Myalgia [Recovered/Resolved]
  - Nausea [Recovered/Resolved]
  - Neck pain [Recovered/Resolved]
  - Back pain [Recovered/Resolved]

NARRATIVE: CASE EVENT DATE: 20241025
